FAERS Safety Report 16890309 (Version 2)
Quarter: 2019Q4

REPORT INFORMATION
  Report Type: Spontaneous
  Country: US (occurrence: US)
  Receive Date: 20191007
  Receipt Date: 20191009
  Transmission Date: 20200122
  Serious: Yes (Other)
  Sender: FDA-Public Use
  Company Number: US-ROCHE-2422917

PATIENT
  Sex: Female
  Weight: 54.48 kg

DRUGS (1)
  1. OCREVUS [Suspect]
     Active Substance: OCRELIZUMAB
     Indication: RELAPSING-REMITTING MULTIPLE SCLEROSIS
     Dosage: LAST INFUSION: MAY/2018
     Route: 065
     Dates: start: 201711, end: 2019

REACTIONS (3)
  - Brain herniation [Unknown]
  - Weight decreased [Unknown]
  - Magnetic resonance imaging spinal abnormal [Unknown]

NARRATIVE: CASE EVENT DATE: 2019
